FAERS Safety Report 9929164 (Version 1)
Quarter: 2014Q1

REPORT INFORMATION
  Report Type: Spontaneous
  Country: DE (occurrence: DE)
  Receive Date: 20140227
  Receipt Date: 20140227
  Transmission Date: 20141002
  Serious: Yes (Hospitalization)
  Sender: FDA-Public Use
  Company Number: DE-ELI_LILLY_AND_COMPANY-DE201402006939

PATIENT
  Sex: 0

DRUGS (2)
  1. EFIENT [Suspect]
     Indication: MYOCARDIAL INFARCTION
     Dosage: 10 MG, QD
     Route: 048
  2. ASPIRIN PROTECT [Concomitant]
     Dosage: 100 MG, QD
     Route: 048

REACTIONS (1)
  - Neoplasm skin [Not Recovered/Not Resolved]
